FAERS Safety Report 4757282-6 (Version None)
Quarter: 2005Q3

REPORT INFORMATION
  Report Type: 
  Country: None (occurrence: None)
  Receive Date: 20050829
  Receipt Date: 20050823
  Transmission Date: 20060218
  Serious: No
  Sender: FDA-Public Use
  Company Number: A001-002-006620

PATIENT
  Age: 71 Year
  Sex: Male
  Weight: 76 kg

DRUGS (1)
  1. ARICEPT [Suspect]
     Indication: COGNITIVE DISORDER
     Dosage: 5 MG, 1 IN 1 D, ORAL
     Route: 048
     Dates: start: 20050428, end: 20050429

REACTIONS (6)
  - ASTHENIA [None]
  - HAEMOGLOBIN DECREASED [None]
  - MALLORY-WEISS SYNDROME [None]
  - MELAENA [None]
  - NAUSEA [None]
  - VOMITING PROJECTILE [None]
